FAERS Safety Report 18435460 (Version 1)
Quarter: 2020Q4

REPORT INFORMATION
  Report Type: Spontaneous
  Country: JP (occurrence: JP)
  Receive Date: 20201028
  Receipt Date: 20201028
  Transmission Date: 20210114
  Serious: Yes (Hospitalization, Other)
  Sender: FDA-Public Use
  Company Number: JP-STRIDES ARCOLAB LIMITED-2020SP012771

PATIENT
  Age: 31 Year
  Sex: Female

DRUGS (3)
  1. LIDOCAINE. [Suspect]
     Active Substance: LIDOCAINE
     Indication: EPIDURAL TEST DOSE
     Dosage: UNK, 1 PERCENT INJECTION
     Route: 008
  2. ROPIVACAINE. [Suspect]
     Active Substance: ROPIVACAINE HYDROCHLORIDE
     Indication: PAIN MANAGEMENT
     Dosage: UNK, 0.25 PERCENT
     Route: 008
  3. BUPIVACAINE. [Suspect]
     Active Substance: BUPIVACAINE
     Indication: SPINAL ANAESTHESIA
     Dosage: 2 MILLILITER (0.5 PERCENT)
     Route: 037

REACTIONS (12)
  - Autoimmune disorder [Unknown]
  - Back pain [Unknown]
  - Muscular weakness [Recovered/Resolved]
  - Myelitis transverse [Recovered/Resolved]
  - Pain in extremity [Unknown]
  - Sensory disturbance [Recovered/Resolved]
  - Pain [Unknown]
  - Deafness unilateral [Recovered/Resolved]
  - Urinary retention [Recovered/Resolved]
  - Maternal exposure during pregnancy [Unknown]
  - Neuralgia [Recovered/Resolved]
  - Central nervous system lesion [Recovered/Resolved]
